FAERS Safety Report 11131209 (Version 3)
Quarter: 2015Q2

REPORT INFORMATION
  Report Type: Spontaneous
  Country: SE (occurrence: SE)
  Receive Date: 20150522
  Receipt Date: 20150626
  Transmission Date: 20150821
  Serious: Yes (Hospitalization, Other)
  Sender: FDA-Public Use
  Company Number: SE-NOVOPROD-449354

PATIENT
  Age: 64 Year
  Sex: Female
  Weight: 85 kg

DRUGS (5)
  1. VAGIFEM [Suspect]
     Active Substance: ESTRADIOL
     Indication: ATROPHIC VULVOVAGINITIS
     Dosage: 10 MICROGRAM (2-3 TIMES WEEKLY)
     Route: 067
     Dates: start: 2009, end: 201501
  2. SALURES [Concomitant]
     Active Substance: BENDROFLUMETHIAZIDE
     Indication: HYPERTONIA
     Dosage: 2.50 MG
     Route: 048
     Dates: start: 201410
  3. VAGIFEM [Interacting]
     Active Substance: ESTRADIOL
     Indication: URINARY TRACT INFECTION
  4. ELIQUIS [Concomitant]
     Active Substance: APIXABAN
     Indication: PROPHYLAXIS
     Dosage: UNK
     Route: 065
     Dates: start: 201411, end: 201411
  5. BEHEPAN                            /00056201/ [Concomitant]
     Indication: FATIGUE
     Dosage: 1 MG
     Route: 048
     Dates: start: 201411

REACTIONS (2)
  - Pulmonary embolism [Recovered/Resolved with Sequelae]
  - Labelled drug-disease interaction medication error [Unknown]

NARRATIVE: CASE EVENT DATE: 20141106
